FAERS Safety Report 9099295 (Version 1)
Quarter: 2013Q1

REPORT INFORMATION
  Report Type: Spontaneous
  Country: FR (occurrence: FR)
  Receive Date: 20130213
  Receipt Date: 20130213
  Transmission Date: 20140127
  Serious: Yes (Hospitalization, Other)
  Sender: FDA-Public Use
  Company Number: FR-BRISTOL-MYERS SQUIBB COMPANY-17353731

PATIENT
  Age: 68 Year
  Sex: Female

DRUGS (12)
  1. HYDREA [Suspect]
     Dosage: 1 DF = 3 DOSES
     Route: 048
     Dates: start: 2007, end: 201211
  2. GLUCOPHAGE [Suspect]
  3. COAPROVEL [Suspect]
  4. GALVUS [Suspect]
     Dosage: TABS
     Route: 048
     Dates: end: 201211
  5. ASPEGIC [Concomitant]
     Indication: THROMBOCYTOPENIA
     Dates: start: 2000
  6. FOLIC ACID [Concomitant]
  7. BIPRETERAX [Concomitant]
  8. EUPRESSYL [Concomitant]
  9. TEMERIT [Concomitant]
     Indication: SINUS TACHYCARDIA
  10. DAONIL [Concomitant]
  11. TAHOR [Concomitant]
  12. KARDEGIC [Concomitant]

REACTIONS (4)
  - Pneumonia [Recovered/Resolved]
  - Mitral valve disease [Recovering/Resolving]
  - Coronary artery stenosis [Recovering/Resolving]
  - Tooth extraction [Unknown]
